FAERS Safety Report 17831486 (Version 2)
Quarter: 2020Q2

REPORT INFORMATION
  Report Type: Spontaneous
  Country: IE (occurrence: IE)
  Receive Date: 20200528
  Receipt Date: 20200609
  Transmission Date: 20200714
  Serious: Yes (Death, Hospitalization, Other)
  Sender: FDA-Public Use
  Company Number: IE-ROCHE-2568288

PATIENT
  Age: 63 Year
  Sex: Female
  Weight: 69.4 kg

DRUGS (14)
  1. PANTOP [Concomitant]
     Active Substance: PANTOPRAZOLE SODIUM
     Route: 048
  2. NYSTATIN. [Concomitant]
     Active Substance: NYSTATIN
  3. METFORMIN [Concomitant]
     Active Substance: METFORMIN HYDROCHLORIDE
     Route: 065
  4. DEXAMETHASONE. [Concomitant]
     Active Substance: DEXAMETHASONE
     Route: 048
  5. INNOHEP [Concomitant]
     Active Substance: TINZAPARIN SODIUM
     Route: 065
  6. MYCOSTATIN [Concomitant]
     Active Substance: NYSTATIN
  7. SEPTRIN [Concomitant]
     Active Substance: SULFAMETHOXAZOLE\TRIMETHOPRIM
     Route: 048
  8. CYCLIZINE [Concomitant]
     Active Substance: CYCLIZINE
     Route: 065
  9. ELTROXIN [Concomitant]
     Active Substance: LEVOTHYROXINE
     Route: 048
  10. FUROSEMIDE. [Concomitant]
     Active Substance: FUROSEMIDE
  11. SENNE [Concomitant]
  12. DIOCTYL [Concomitant]
     Active Substance: DOCUSATE SODIUM
  13. TECENTRIQ [Suspect]
     Active Substance: ATEZOLIZUMAB
     Indication: HEPATIC CANCER METASTATIC
     Dosage: RECEIVED ONLY ONE CYCLE.
     Route: 042
     Dates: start: 20200423, end: 20200423
  14. FENTANYL. [Concomitant]
     Active Substance: FENTANYL
     Route: 065

REACTIONS (8)
  - Intentional product use issue [Unknown]
  - Nausea [Not Recovered/Not Resolved]
  - Vomiting [Unknown]
  - Renal disorder [Unknown]
  - Faecaloma [Unknown]
  - Death [Fatal]
  - Constipation [Unknown]
  - Off label use [Unknown]

NARRATIVE: CASE EVENT DATE: 202005
